FAERS Safety Report 7249578-3 (Version None)
Quarter: 2011Q1

REPORT INFORMATION
  Report Type: 
  Country: None (occurrence: None)
  Receive Date: 20110128
  Receipt Date: 20110121
  Transmission Date: 20110831
  Serious: Yes (Hospitalization)
  Sender: FDA-Public Use
  Company Number: JP-SANOFI-AVENTIS-2011SA003914

PATIENT
  Age: 61 Year
  Sex: Female
  Weight: 50 kg

DRUGS (8)
  1. ALLEGRA [Suspect]
     Route: 048
     Dates: start: 20110117, end: 20110118
  2. DEPAS [Concomitant]
  3. MEVALOTIN [Concomitant]
  4. ASVERIN [Suspect]
     Route: 048
  5. AZITHROMYCIN [Concomitant]
  6. NORVASC [Concomitant]
  7. EVISTA [Concomitant]
  8. MUCOSIL-10 [Suspect]
     Route: 048

REACTIONS (2)
  - CHILLS [None]
  - PYREXIA [None]
